APPROVED DRUG PRODUCT: DIGOXIN
Active Ingredient: DIGOXIN
Strength: 0.05MG/ML
Dosage Form/Route: ELIXIR;ORAL
Application: A215209 | Product #001 | TE Code: AA
Applicant: AMICI PHARMA INC
Approved: Mar 11, 2022 | RLD: No | RS: No | Type: RX